FAERS Safety Report 18468507 (Version 1)
Quarter: 2020Q4

REPORT INFORMATION
  Report Type: Report from Study
  Country: None (occurrence: US)
  Receive Date: 20201105
  Receipt Date: 20201105
  Transmission Date: 20210114
  Serious: Yes (Hospitalization, Other)
  Sender: FDA-Public Use
  Company Number: US-ABBVIE-20K-163-3635788-00

PATIENT
  Age: 61 Year
  Sex: Female

DRUGS (1)
  1. HUMIRA [Suspect]
     Active Substance: ADALIMUMAB
     Indication: PSORIASIS
     Dosage: CITRATE FREE
     Route: 058

REACTIONS (8)
  - Loss of consciousness [Unknown]
  - Dizziness [Unknown]
  - Dehydration [Recovering/Resolving]
  - Psoriasis [Not Recovered/Not Resolved]
  - Hospitalisation [Unknown]
  - Blood potassium decreased [Recovering/Resolving]
  - Fall [Unknown]
  - Rib fracture [Unknown]

NARRATIVE: CASE EVENT DATE: 202009
